FAERS Safety Report 12392584 (Version 9)
Quarter: 2019Q4

REPORT INFORMATION
  Report Type: Spontaneous
  Country: BR (occurrence: BR)
  Receive Date: 20160523
  Receipt Date: 20191009
  Transmission Date: 20200122
  Serious: Yes (Hospitalization, Other)
  Sender: FDA-Public Use
  Company Number: BR-AMGEN-BRASP2013037734

PATIENT
  Age: 68 Year
  Sex: Female
  Weight: 71 kg

DRUGS (33)
  1. RANITIDINE. [Concomitant]
     Active Substance: RANITIDINE
     Dosage: 300 MG, 1X/DAY
  2. CORTISONE [Concomitant]
     Active Substance: CORTISONE
     Dosage: 2 TABLETS OF 5MILLIGRAM (10 MILLIGRAM), DAILY
  3. ZYLIUM [Concomitant]
     Dosage: 1 TABLET OF 300 MG, ONCE DAILY
  4. SYNTHROID [Concomitant]
     Active Substance: LEVOTHYROXINE SODIUM
     Indication: THYROIDECTOMY
     Dosage: 75 MILLIGRAM, 1X/DAY
     Dates: start: 2011
  5. OMEPRAZOL [Concomitant]
     Active Substance: OMEPRAZOLE
     Indication: GASTRIC DISORDER
     Dosage: 20 MILLIGRAM, 1X/DAY
  6. HYDROXYCHLOROQUINE [Concomitant]
     Active Substance: HYDROXYCHLOROQUINE
     Dosage: 400 MG, 1X/DAY
  7. METHOTREXATE. [Concomitant]
     Active Substance: METHOTREXATE
     Dosage: 15 MG, ONCE WEEKLY
     Dates: start: 2012
  8. FOLIC ACID. [Concomitant]
     Active Substance: FOLIC ACID
     Dosage: 5 MG, ONCE WEEKLY
     Dates: start: 2012
  9. ENBREL [Suspect]
     Active Substance: ETANERCEPT
     Dosage: UNK UNK, WEEKLY
     Route: 065
     Dates: end: 20180424
  10. SYNTHROID [Concomitant]
     Active Substance: LEVOTHYROXINE SODIUM
     Dosage: 75 MG, 1X/DAY
     Dates: start: 2012
  11. OMEPRAZOL [Concomitant]
     Active Substance: OMEPRAZOLE
     Dosage: 20 MG, 1X/DAY
  12. OMEPRAZOL [Concomitant]
     Active Substance: OMEPRAZOLE
     Dosage: 25 MG, 1X/DAY
  13. ADDERA D3 [Concomitant]
     Active Substance: CHOLECALCIFEROL
     Dosage: UNK
  14. REUQUINOL [Suspect]
     Active Substance: HYDROXYCHLOROQUINE SULFATE
     Indication: RHEUMATOID ARTHRITIS
     Dosage: UNK
     Route: 065
     Dates: start: 2013
  15. REUQUINOL [Suspect]
     Active Substance: HYDROXYCHLOROQUINE SULFATE
     Indication: SYSTEMIC LUPUS ERYTHEMATOSUS
  16. PREDSIM [Concomitant]
     Active Substance: PREDNISOLONE
     Dosage: 5 MG, 1X/DAY
  17. METHOTREXATE. [Concomitant]
     Active Substance: METHOTREXATE
     Indication: RHEUMATOID ARTHRITIS
     Dosage: 15 MILLIGRAM, ONCE WEEKLY
     Dates: start: 2013
  18. FOLIC ACID. [Concomitant]
     Active Substance: FOLIC ACID
     Dosage: 5 MILLIGRAM, ONCE WEEKLY
  19. CORTISONE [Concomitant]
     Active Substance: CORTISONE
     Dosage: ONE TABLET OF 20 MILLIGRAM
  20. ENBREL [Suspect]
     Active Substance: ETANERCEPT
     Indication: RHEUMATOID ARTHRITIS
     Dosage: 50 MG, 1X/WEEK
     Route: 058
     Dates: start: 201304, end: 2013
  21. CHLOROQUINE. [Suspect]
     Active Substance: CHLOROQUINE
     Indication: PRODUCT USED FOR UNKNOWN INDICATION
     Dosage: UNK
     Route: 065
     Dates: start: 2016
  22. CORTISONE [Concomitant]
     Active Substance: CORTISONE
     Dosage: ONE TABLET OF 20 MG, UNK
  23. ENBREL [Suspect]
     Active Substance: ETANERCEPT
     Indication: SYSTEMIC LUPUS ERYTHEMATOSUS
     Dosage: 50 MG, WEEKLY
     Route: 058
     Dates: start: 2013
  24. ADDERA D3 [Concomitant]
     Active Substance: CHOLECALCIFEROL
     Dosage: UNK
     Dates: start: 2012
  25. PREDSIM [Concomitant]
     Active Substance: PREDNISOLONE
     Dosage: 5 MILLIGRAM,1X/DAY
  26. ZYLIUM [Concomitant]
     Dosage: 1 TABLET OF 300 MILLIGRAM, ONCE DAILY
  27. RANITIDINE. [Concomitant]
     Active Substance: RANITIDINE
     Dosage: 300 MILLIGRAM, 1X/DAY
  28. CORTISONE [Concomitant]
     Active Substance: CORTISONE
     Dosage: 2 TABLETS OF 5MG (10 MG), DAILY
  29. PREDNISONE. [Concomitant]
     Active Substance: PREDNISONE
     Dosage: UNK
  30. OMEPRAZOL [Concomitant]
     Active Substance: OMEPRAZOLE
     Dosage: 25 MILLIGRAM, 1X/DAY
  31. HYDROXYCHLOROQUINE [Concomitant]
     Active Substance: HYDROXYCHLOROQUINE
     Dosage: 400 MILLIGRAM, 1X/DAY
  32. ESOMEX [Concomitant]
     Active Substance: ESOMEPRAZOLE MAGNESIUM
     Dosage: UNK
  33. VALIUM [Concomitant]
     Active Substance: DIAZEPAM
     Dosage: UNK
     Dates: start: 2012

REACTIONS (47)
  - Abdominal distension [Unknown]
  - Diarrhoea [Unknown]
  - Visual impairment [Not Recovered/Not Resolved]
  - Hypertension [Recovered/Resolved]
  - Influenza [Not Recovered/Not Resolved]
  - Fall [Unknown]
  - Eating disorder [Unknown]
  - Agitation [Not Recovered/Not Resolved]
  - Cataract [Not Recovered/Not Resolved]
  - Arthritis [Recovered/Resolved]
  - Injection site induration [Unknown]
  - Injection site pain [Unknown]
  - Asphyxia [Unknown]
  - Visual impairment [Unknown]
  - Alopecia [Unknown]
  - Wrong technique in device usage process [Unknown]
  - Tooth disorder [Recovered/Resolved]
  - Joint swelling [Not Recovered/Not Resolved]
  - Back pain [Not Recovered/Not Resolved]
  - Feeling abnormal [Not Recovered/Not Resolved]
  - Abdominal pain [Unknown]
  - Erythema [Unknown]
  - Cataract [Not Recovered/Not Resolved]
  - Myopia [Not Recovered/Not Resolved]
  - Syncope [Unknown]
  - Decreased appetite [Recovered/Resolved]
  - Peripheral swelling [Not Recovered/Not Resolved]
  - Musculoskeletal stiffness [Unknown]
  - Splenomegaly [Unknown]
  - Arthralgia [Not Recovered/Not Resolved]
  - Gait inability [Not Recovered/Not Resolved]
  - Gastrooesophageal reflux disease [Unknown]
  - Swelling [Not Recovered/Not Resolved]
  - Blister [Unknown]
  - Condition aggravated [Unknown]
  - Weight decreased [Unknown]
  - Hernia [Unknown]
  - Abdominal pain upper [Unknown]
  - Pain [Not Recovered/Not Resolved]
  - Blood pressure decreased [Unknown]
  - Wrong technique in product usage process [Unknown]
  - Pain in extremity [Not Recovered/Not Resolved]
  - Depressed mood [Unknown]
  - Weight increased [Unknown]
  - Rheumatoid arthritis [Unknown]
  - Pyrexia [Not Recovered/Not Resolved]
  - Drug ineffective [Unknown]

NARRATIVE: CASE EVENT DATE: 2012
